FAERS Safety Report 10237197 (Version 3)
Quarter: 2015Q2

REPORT INFORMATION
  Report Type: Report from Study
  Country: ES (occurrence: ES)
  Receive Date: 20140613
  Receipt Date: 20150625
  Transmission Date: 20150821
  Serious: Yes (Other)
  Sender: FDA-Public Use
  Company Number: ES-ABBVIE-14P-144-1244560-00

PATIENT
  Age: 39 Year
  Sex: Male
  Weight: 69.5 kg

DRUGS (1)
  1. HUMIRA [Suspect]
     Active Substance: ADALIMUMAB
     Indication: PSORIASIS
     Route: 058
     Dates: start: 20111017

REACTIONS (3)
  - Lymphocytosis [Not Recovered/Not Resolved]
  - Anogenital warts [Unknown]
  - Monoclonal gammopathy [Recovered/Resolved]

NARRATIVE: CASE EVENT DATE: 20130201
